FAERS Safety Report 7356577-X (Version None)
Quarter: 2011Q1

REPORT INFORMATION
  Report Type: 
  Country: None (occurrence: None)
  Receive Date: 20110316
  Receipt Date: 20110303
  Transmission Date: 20110831
  Serious: Yes (Other)
  Sender: FDA-Public Use
  Company Number: PHHY2010TR27298

PATIENT
  Sex: Female
  Weight: 78 kg

DRUGS (3)
  1. MYCOPHENOLATE MOFETIL [Concomitant]
     Dosage: 2 G
     Dates: start: 20070703
  2. TASIGNA [Concomitant]
     Dosage: UNK
  3. EVEROLIMUS [Suspect]
     Indication: RENAL TRANSPLANT
     Dosage: 1.5 MG/DAY
     Route: 048
     Dates: start: 20100119

REACTIONS (4)
  - SINUS TACHYCARDIA [None]
  - AMENORRHOEA [None]
  - LOW DENSITY LIPOPROTEIN INCREASED [None]
  - HAEMOGLOBIN DECREASED [None]
